FAERS Safety Report 13779107 (Version 4)
Quarter: 2017Q4

REPORT INFORMATION
  Report Type: Spontaneous
  Country: JP (occurrence: JP)
  Receive Date: 20170721
  Receipt Date: 20171215
  Transmission Date: 20180320
  Serious: Yes (Hospitalization, Other)
  Sender: FDA-Public Use
  Company Number: JP-ABBVIE-17P-087-2047345-00

PATIENT
  Age: 37 Year
  Sex: Female

DRUGS (12)
  1. CLARITHROMYCIN. [Suspect]
     Active Substance: CLARITHROMYCIN
     Indication: PHARYNGITIS
     Dosage: 200 MG, BID
     Route: 048
     Dates: start: 20160928, end: 20160929
  2. CLARITHROMYCIN. [Suspect]
     Active Substance: CLARITHROMYCIN
     Indication: TONSILLITIS
     Route: 048
  3. LOXONIN [Suspect]
     Active Substance: LOXOPROFEN SODIUM
     Indication: PHARYNGITIS
     Dosage: 60 MG, BID
     Route: 048
     Dates: start: 20160912, end: 20160916
  4. REBAMIPIDE [Concomitant]
     Active Substance: REBAMIPIDE
     Indication: TONSILLITIS
     Dosage: 100 MG, TID
     Route: 065
     Dates: start: 20160920, end: 20160924
  5. FLOMOX [Suspect]
     Active Substance: CEFCAPENE PIVOXIL HYDROCHLORIDE HYDRATE
     Indication: TONSILLITIS
     Route: 048
  6. GENINAX [Suspect]
     Active Substance: GARENOXACIN MESYLATE
     Indication: TONSILLITIS
     Route: 048
  7. LOXONIN [Suspect]
     Active Substance: LOXOPROFEN SODIUM
     Dosage: 60 MG, BID
     Route: 048
     Dates: start: 20160928, end: 20160929
  8. FLOMOX [Suspect]
     Active Substance: CEFCAPENE PIVOXIL HYDROCHLORIDE HYDRATE
     Indication: PHARYNGITIS
     Dosage: 100 MG, TID
     Route: 048
     Dates: start: 20160912, end: 20160916
  9. LOXONIN [Suspect]
     Active Substance: LOXOPROFEN SODIUM
     Indication: TONSILLITIS
     Dosage: 60 MG, BID
     Route: 048
     Dates: start: 20160920, end: 20160924
  10. GENINAX [Suspect]
     Active Substance: GARENOXACIN MESYLATE
     Indication: PHARYNGITIS
     Dosage: 400 MG, QD
     Route: 048
     Dates: start: 20160920, end: 20160927
  11. REBAMIPIDE [Concomitant]
     Active Substance: REBAMIPIDE
     Indication: PHARYNGITIS
     Dosage: 100 MG, TID
     Route: 065
     Dates: start: 20160912, end: 20160916
  12. REBAMIPIDE [Concomitant]
     Active Substance: REBAMIPIDE
     Dosage: 100 MG, BID
     Route: 065
     Dates: start: 20160928, end: 20160929

REACTIONS (1)
  - Erythema multiforme [Unknown]

NARRATIVE: CASE EVENT DATE: 20160929
